FAERS Safety Report 21987447 (Version 1)
Quarter: 2023Q1

REPORT INFORMATION
  Report Type: Spontaneous
  Country: GB (occurrence: GB)
  Receive Date: 20230214
  Receipt Date: 20230214
  Transmission Date: 20230418
  Serious: No
  Sender: FDA-Public Use
  Company Number: None

PATIENT

DRUGS (6)
  1. CEPHALEXIN [Suspect]
     Active Substance: CEPHALEXIN
     Indication: Ill-defined disorder
     Dosage: UNK
     Route: 065
     Dates: start: 20220324, end: 20220331
  2. CEPHALEXIN [Suspect]
     Active Substance: CEPHALEXIN
     Dosage: UNK, ONE TABLET THREE TIMES A DAY FOR 7 DAYS
     Route: 065
     Dates: start: 20220331
  3. BISACODYL [Concomitant]
     Active Substance: BISACODYL
     Indication: Ill-defined disorder
     Dosage: ONE-TWO TABLETS AT NIGHT
     Route: 065
     Dates: start: 20220221, end: 20220323
  4. BISACODYL [Concomitant]
     Active Substance: BISACODYL
     Indication: Constipation
  5. FUROSEMIDE [Concomitant]
     Active Substance: FUROSEMIDE
     Indication: Ill-defined disorder
     Dosage: UNK, EACH IN MORNING
     Route: 065
     Dates: start: 20220324, end: 20220421
  6. BETAMETHASONE DIPROPIONATE\CLOTRIMAZOLE [Concomitant]
     Active Substance: BETAMETHASONE DIPROPIONATE\CLOTRIMAZOLE
     Indication: Ill-defined disorder
     Dosage: UNK, APPLY TWICE DAILY
     Route: 065
     Dates: start: 20210628

REACTIONS (2)
  - Dizziness [Unknown]
  - Memory impairment [Unknown]

NARRATIVE: CASE EVENT DATE: 20220512
